FAERS Safety Report 19827063 (Version 1)
Quarter: 2021Q3

REPORT INFORMATION
  Report Type: Spontaneous
  Country: US (occurrence: US)
  Receive Date: 20210914
  Receipt Date: 20210914
  Transmission Date: 20211014
  Serious: Yes (Other)
  Sender: FDA-Public Use
  Company Number: US-STRIDES ARCOLAB LIMITED-2020SP013086

PATIENT
  Age: 57 Year
  Sex: Female

DRUGS (9)
  1. TACROLIMUS. [Interacting]
     Active Substance: TACROLIMUS
     Dosage: 6 MILLIGRAM, IMMEDIATE RELEASE
     Route: 065
  2. AZATHIOPRINE. [Concomitant]
     Active Substance: AZATHIOPRINE
     Indication: RENAL TRANSPLANT
     Dosage: 75 MILLIGRAM DAILY
     Route: 065
  3. PREDNISONE. [Concomitant]
     Active Substance: PREDNISONE
     Indication: RENAL TRANSPLANT
     Dosage: 5 MILLIGRAM DAILY
     Route: 065
  4. TACROLIMUS. [Suspect]
     Active Substance: TACROLIMUS
     Indication: RENAL TRANSPLANT
     Dosage: 6 MILLIGRAM, EVERY 12 HRS (IMMEDIATE RELEASE)
     Route: 065
  5. PHENYTOIN. [Interacting]
     Active Substance: PHENYTOIN
     Dosage: 200 MILLIGRAM, EVERY MORNING (EXTENDED RELEASE)
     Route: 065
  6. TACROLIMUS. [Interacting]
     Active Substance: TACROLIMUS
     Dosage: 10 MILLIGRAM, QD (EXTENDED RELEASE)
     Route: 065
  7. TACROLIMUS. [Interacting]
     Active Substance: TACROLIMUS
     Dosage: 12 MILLIGRAM, DAILY (EXTENDED RELEASE)
     Route: 065
  8. PHENYTOIN. [Interacting]
     Active Substance: PHENYTOIN
     Indication: EPILEPSY
     Dosage: 100 MILLIGRAM, EVERY MORNING (EXTENDED RELEASE)
     Route: 065
  9. PHENYTOIN. [Interacting]
     Active Substance: PHENYTOIN
     Dosage: 50 MILLIGRAM, EVERY MORNING (IMMEDIATE RELEASE)
     Route: 065

REACTIONS (2)
  - Drug interaction [Unknown]
  - Drug level below therapeutic [Unknown]
